FAERS Safety Report 8325519-2 (Version None)
Quarter: 2012Q2

REPORT INFORMATION
  Report Type: 
  Country: None (occurrence: None)
  Receive Date: 20120501
  Receipt Date: 20120423
  Transmission Date: 20120825
  Serious: Yes (Hospitalization)
  Sender: FDA-Public Use
  Company Number: SE-NOVOPROD-350333

PATIENT
  Age: 66 Year
  Sex: Female

DRUGS (4)
  1. NOVOMIX 30 FLEXPEN [Suspect]
     Indication: TYPE 2 DIABETES MELLITUS
     Dosage: 20-22 IU IN MORNING, 12-16 IU AFTERNOON
     Route: 065
     Dates: start: 20100101
  2. SYMBICORT [Concomitant]
     Dosage: 320 MICROGRAMS/9 MICROGRAMS X 2
  3. PREDNISOLONE [Concomitant]
  4. BRICANYL [Concomitant]
     Dosage: 0.5 MG WHEN NEEDED

REACTIONS (3)
  - LOCALISED OEDEMA [None]
  - OEDEMA PERIPHERAL [None]
  - FATIGUE [None]
